FAERS Safety Report 25817048 (Version 1)
Quarter: 2025Q3

REPORT INFORMATION
  Report Type: Spontaneous
  Country: GB (occurrence: GB)
  Receive Date: 20250918
  Receipt Date: 20250918
  Transmission Date: 20251020
  Serious: Yes (Hospitalization)
  Sender: ASTELLAS
  Company Number: GB-ASTELLAS-2025-AER-049680

PATIENT
  Sex: Female

DRUGS (3)
  1. VEOZAH [Suspect]
     Active Substance: FEZOLINETANT
     Indication: Product used for unknown indication
     Route: 050
     Dates: start: 20250407, end: 20250721
  2. RIBOCICLIB [Concomitant]
     Active Substance: RIBOCICLIB
     Indication: Product used for unknown indication
     Route: 065
     Dates: start: 20250512, end: 20250630
  3. LETROZOLE [Concomitant]
     Active Substance: LETROZOLE
     Indication: Hormone receptor positive breast cancer
     Route: 065

REACTIONS (3)
  - Drug-induced liver injury [Recovering/Resolving]
  - Intentional product use issue [Unknown]
  - Off label use [Unknown]

NARRATIVE: CASE EVENT DATE: 20250407
